FAERS Safety Report 16056395 (Version 1)
Quarter: 2019Q1

REPORT INFORMATION
  Report Type: Spontaneous
  Country: US (occurrence: US)
  Receive Date: 20190208
  Receipt Date: 20190208
  Transmission Date: 20190418
  Serious: No
  Sender: FDA-Public Use
  Company Number: None

PATIENT
  Age: 60 Year
  Sex: Female
  Weight: 57.15 kg

DRUGS (1)
  1. SUTENT [Suspect]
     Active Substance: SUNITINIB MALATE
     Indication: URETERIC CANCER
     Route: 048
     Dates: start: 20190108

REACTIONS (5)
  - Pain [None]
  - Paraesthesia [None]
  - Rash [None]
  - Thyroid operation [None]
  - Skin irritation [None]

NARRATIVE: CASE EVENT DATE: 20190131
